FAERS Safety Report 25210757 (Version 2)
Quarter: 2025Q2

REPORT INFORMATION
  Report Type: Spontaneous
  Country: US (occurrence: US)
  Receive Date: 20250417
  Receipt Date: 20250502
  Transmission Date: 20250717
  Serious: Yes (Other)
  Sender: BAUSCH AND LOMB
  Company Number: US-MLMSERVICE-20250407-PI472882-00059-1

PATIENT
  Age: 64 Year
  Sex: Female

DRUGS (4)
  1. AZATHIOPRINE [Suspect]
     Active Substance: AZATHIOPRINE
     Indication: Pancreatitis acute
     Dosage: STARTED WITH PLANS TO TITRATE TO 1.5 MG/KG/DAY
     Route: 065
  2. PEMETREXED [Concomitant]
     Active Substance: PEMETREXED
     Indication: Lung adenocarcinoma
  3. PREDNISONE [Concomitant]
     Active Substance: PREDNISONE
     Indication: Pancreatitis acute
  4. PREDNISONE [Concomitant]
     Active Substance: PREDNISONE
     Dosage: TAPERED BY 10 MG WEEKLY, AND THEN HIGH-DOSE WAS INITIATED.

REACTIONS (1)
  - Drug-induced liver injury [Unknown]
